FAERS Safety Report 4349057-7 (Version None)
Quarter: 2004Q2

REPORT INFORMATION
  Report Type: 
  Country: None (occurrence: None)
  Receive Date: 20040427
  Receipt Date: 20040323
  Transmission Date: 20050107
  Serious: Yes (Hospitalization, Other)
  Sender: FDA-Public Use
  Company Number: 2004S1000856

PATIENT
  Age: 81 Year
  Sex: Female
  Weight: 43.9989 kg

DRUGS (9)
  1. EXTENDED PHENYTOIN SODIUM [Suspect]
     Indication: GRAND MAL CONVULSION
     Dosage: SEE IMAGE
     Dates: start: 20030501, end: 20040319
  2. DIAZEPAM [Concomitant]
  3. ESCITALOPRAM [Concomitant]
  4. TRAZODONE HCL [Concomitant]
  5. VITAMIN D [Concomitant]
  6. CALCIUM CARBONATE [Concomitant]
  7. DOCUSATE CALCIUM [Concomitant]
  8. BISACODYL SUPPOSITORY [Concomitant]
  9. MULTI-VITAMIN [Concomitant]

REACTIONS (5)
  - CELLULITIS [None]
  - CONDITION AGGRAVATED [None]
  - CONVULSION [None]
  - DRUG TOXICITY [None]
  - PHARMACEUTICAL PRODUCT COMPLAINT [None]
